FAERS Safety Report 8813061 (Version 1)
Quarter: 2012Q4

REPORT INFORMATION
  Report Type: 
  Country: US (occurrence: US)
  Receive Date: 20120927
  Receipt Date: 20120927
  Transmission Date: 20130627
  Serious: No
  Sender: FDA-Public Use
  Company Number: US-ASTRAZENECA-2012SE72736

PATIENT
  Age: 79 Year
  Sex: Male

DRUGS (1)
  1. TOPROL XL [Suspect]
     Route: 048

REACTIONS (5)
  - Arthritis [Unknown]
  - Adverse event [Unknown]
  - Pain [Unknown]
  - Nerve injury [Unknown]
  - Arthralgia [Unknown]
